FAERS Safety Report 4687333-9 (Version None)
Quarter: 2005Q2

REPORT INFORMATION
  Report Type: 
  Country: None (occurrence: None)
  Receive Date: 20050609
  Receipt Date: 20050531
  Transmission Date: 20051028
  Serious: Yes (Death)
  Sender: FDA-Public Use
  Company Number: 2005VX000373

PATIENT
  Age: 37 Year
  Sex: Female

DRUGS (2)
  1. CHLORDIAZEPOXIDE HCL [Suspect]
     Dosage: ORAL
     Route: 048
     Dates: start: 20041218
  2. CO-PROXAMOL (APOREX) [Suspect]
     Dosage: ORAL
     Route: 048
     Dates: start: 20041218

REACTIONS (9)
  - ACIDOSIS [None]
  - BLOOD ALCOHOL INCREASED [None]
  - CARDIAC ARREST [None]
  - COAGULOPATHY [None]
  - HEPATIC FAILURE [None]
  - INTENTIONAL MISUSE [None]
  - MULTIPLE DRUG OVERDOSE [None]
  - RESPIRATORY ARREST [None]
  - SUDDEN DEATH [None]
